FAERS Safety Report 8044010-4 (Version None)
Quarter: 2012Q1

REPORT INFORMATION
  Report Type: 
  Country: None (occurrence: None)
  Receive Date: 20120113
  Receipt Date: 20120105
  Transmission Date: 20120608
  Serious: Yes (Other)
  Sender: FDA-Public Use
  Company Number: GB-ELI_LILLY_AND_COMPANY-GB201201001339

PATIENT
  Sex: Female

DRUGS (2)
  1. RISPERDAL [Concomitant]
     Dosage: 0.5 MG, BID
     Route: 048
  2. DULOXETINE HYDROCHLORIDE [Suspect]
     Dosage: UNK, UNKNOWN

REACTIONS (1)
  - HAEMOGLOBIN DECREASED [None]
